FAERS Safety Report 4654576-X (Version None)
Quarter: 2005Q2

REPORT INFORMATION
  Report Type: 
  Country: None (occurrence: None)
  Receive Date: 20050506
  Receipt Date: 20050330
  Transmission Date: 20051028
  Serious: Yes (Hospitalization)
  Sender: FDA-Public Use
  Company Number: FR-BRISTOL-MYERS SQUIBB COMPANY-12918017

PATIENT
  Age: 1 Year
  Sex: Male
  Weight: 10 kg

DRUGS (1)
  1. MUCOMYST [Suspect]
     Indication: COUGH
     Route: 048

REACTIONS (10)
  - ANOREXIA [None]
  - ASTHENIA [None]
  - ASTHMA [None]
  - DYSPNOEA [None]
  - INTERCOSTAL RETRACTION [None]
  - LUNG CREPITATION [None]
  - LUNG INFECTION [None]
  - PYREXIA [None]
  - RHINITIS [None]
  - TACHYPNOEA [None]
